FAERS Safety Report 24030968 (Version 2)
Quarter: 2024Q3

REPORT INFORMATION
  Report Type: Report from Study
  Country: PE (occurrence: PE)
  Receive Date: 20240628
  Receipt Date: 20240708
  Transmission Date: 20241017
  Serious: Yes (Hospitalization, Other)
  Sender: FERRING
  Company Number: PE-FERRINGPH-2024FE01553

PATIENT

DRUGS (1)
  1. DEGARELIX [Suspect]
     Active Substance: DEGARELIX
     Indication: Prostate cancer
     Dosage: 80 MG, MONTHLY
     Route: 058
     Dates: start: 20230303, end: 20240517

REACTIONS (6)
  - Cerebral infarction [Unknown]
  - Syncope [Recovered/Resolved]
  - Platelet count decreased [Not Recovered/Not Resolved]
  - Tachycardia [Unknown]
  - Somnolence [Not Recovered/Not Resolved]
  - Decreased appetite [Not Recovered/Not Resolved]

NARRATIVE: CASE EVENT DATE: 20240325
